FAERS Safety Report 4639866-9 (Version None)
Quarter: 2005Q2

REPORT INFORMATION
  Report Type: 
  Country: None (occurrence: None)
  Receive Date: 20050418
  Receipt Date: 20050404
  Transmission Date: 20051028
  Serious: Yes (Other)
  Sender: FDA-Public Use
  Company Number: 2005054648

PATIENT
  Age: 57 Year
  Sex: Male

DRUGS (12)
  1. FRAGMIN [Suspect]
     Indication: ILL-DEFINED DISORDER
     Dosage: 2500 I.U. (1 IN 1 D), SUBCUTANEOUS
     Route: 058
     Dates: start: 20050302, end: 20050315
  2. LACTULOSE [Concomitant]
  3. PHYTONADIONE [Concomitant]
  4. BECOZYM (VITAMIN B NOS) [Concomitant]
  5. THIAMINE HCL [Concomitant]
  6. PROPRANOLOL [Concomitant]
  7. SPIRONOLACTONE [Concomitant]
  8. POTASSIUM CHLORIDE [Concomitant]
  9. ENALAPRIL MALEATE [Concomitant]
  10. PANTOPRAZOLE SODIUM [Concomitant]
  11. CEFEPIME HYDROCHLORIDE (CEFEPIME HYDROCHLORIDE) [Concomitant]
  12. NEOMYCIN [Concomitant]

REACTIONS (8)
  - BLOOD CREATINE PHOSPHOKINASE INCREASED [None]
  - BLOOD LACTATE DEHYDROGENASE INCREASED [None]
  - EPILEPSY [None]
  - INJECTION SITE REACTION [None]
  - MUSCLE DISORDER [None]
  - OEDEMA PERIPHERAL [None]
  - PARAESTHESIA [None]
  - RESPIRATORY ARREST [None]
